FAERS Safety Report 11594161 (Version 1)
Quarter: 2015Q4

REPORT INFORMATION
  Report Type: Spontaneous
  Country: ES (occurrence: ES)
  Receive Date: 20151005
  Receipt Date: 20151005
  Transmission Date: 20160304
  Serious: Yes (Other)
  Sender: FDA-Public Use
  Company Number: ES-EISAI MEDICAL RESEARCH-EC-2015-010867

PATIENT
  Age: 5 Year
  Sex: Male

DRUGS (1)
  1. FYCOMPA [Suspect]
     Active Substance: PERAMPANEL
     Indication: PRODUCT USED FOR UNKNOWN INDICATION
     Dosage: UNKNOWN
     Route: 048
     Dates: start: 20150605

REACTIONS (3)
  - Arthralgia [Unknown]
  - Irritability [Unknown]
  - Leukaemia [Unknown]

NARRATIVE: CASE EVENT DATE: 20150706
